FAERS Safety Report 24642012 (Version 2)
Quarter: 2025Q3

REPORT INFORMATION
  Report Type: Spontaneous
  Country: US (occurrence: US)
  Receive Date: 20241120
  Receipt Date: 20250911
  Transmission Date: 20251021
  Serious: No
  Sender: BAYER HEALTHCARE PHARMACEUTICALS INC.
  Company Number: US-BAYER-2024A164371

PATIENT
  Age: 19 Year
  Sex: Female

DRUGS (4)
  1. KYLEENA [Suspect]
     Active Substance: LEVONORGESTREL
     Indication: Intrauterine contraception
     Dosage: 17.5?G/DAY
     Route: 015
     Dates: start: 202408
  2. COSENTYX [Concomitant]
     Active Substance: SECUKINUMAB
  3. BIMZELX [Concomitant]
     Active Substance: BIMEKIZUMAB-BKZX
     Route: 058
  4. BIMZELX [Concomitant]
     Active Substance: BIMEKIZUMAB-BKZX
     Route: 058

REACTIONS (3)
  - Rash macular [None]
  - Skin burning sensation [None]
  - Injection site reaction [None]

NARRATIVE: CASE EVENT DATE: 20240101
